FAERS Safety Report 17744223 (Version 2)
Quarter: 2020Q2

REPORT INFORMATION
  Report Type: Spontaneous
  Country: TR (occurrence: TR)
  Receive Date: 20200505
  Receipt Date: 20200508
  Transmission Date: 20200714
  Serious: Yes (Other)
  Sender: FDA-Public Use
  Company Number: NVSC2020TR119251

PATIENT
  Age: 33 Year
  Sex: Female

DRUGS (2)
  1. FINGYA [Suspect]
     Active Substance: FINGOLIMOD
     Indication: PRODUCT USED FOR UNKNOWN INDICATION
     Dosage: 0.5 MG
     Route: 048
     Dates: start: 20190603, end: 20200423
  2. FINGYA [Suspect]
     Active Substance: FINGOLIMOD
     Dosage: 0.5 UNK
     Route: 048
     Dates: start: 20200505

REACTIONS (5)
  - Lymphocyte count decreased [Unknown]
  - Osteonecrosis [Unknown]
  - Coronavirus infection [Recovered/Resolved]
  - Oropharyngeal pain [Unknown]
  - Dyspnoea [Unknown]

NARRATIVE: CASE EVENT DATE: 20200423
